FAERS Safety Report 24277515 (Version 4)
Quarter: 2025Q3

REPORT INFORMATION
  Report Type: Report from Study
  Country: BR (occurrence: BR)
  Receive Date: 20240903
  Receipt Date: 20250701
  Transmission Date: 20251021
  Serious: Yes (Other)
  Sender: TAKEDA
  Company Number: BR-TAKEDA-2024TUS088083

PATIENT
  Sex: Female

DRUGS (1)
  1. VEDOLIZUMAB [Suspect]
     Active Substance: VEDOLIZUMAB
     Indication: Crohn^s disease
     Dosage: 300 MILLIGRAM, Q4WEEKS
     Dates: start: 20230131

REACTIONS (5)
  - Crohn^s disease [Unknown]
  - Oral herpes [Unknown]
  - Inappropriate schedule of product administration [Unknown]
  - Lymphadenopathy [Unknown]
  - Pyrexia [Unknown]
